FAERS Safety Report 9503072 (Version 1)
Quarter: 2013Q3

REPORT INFORMATION
  Report Type: Spontaneous
  Country: PE (occurrence: PE)
  Receive Date: 20130906
  Receipt Date: 20130906
  Transmission Date: 20140515
  Serious: Yes (Death, Other)
  Sender: FDA-Public Use
  Company Number: PE-PFIZER INC-2013256989

PATIENT
  Age: 66 Year
  Sex: Male

DRUGS (1)
  1. EFEXOR XR [Suspect]
     Dosage: 150 MG, UNK
     Route: 048

REACTIONS (1)
  - Death [Fatal]
